FAERS Safety Report 20065554 (Version 1)
Quarter: 2021Q4

REPORT INFORMATION
  Report Type: Spontaneous
  Country: DE (occurrence: DE)
  Receive Date: 20211113
  Receipt Date: 20211113
  Transmission Date: 20220303
  Serious: Yes (Death, Other)
  Sender: FDA-Public Use
  Company Number: DE-NOVARTISPH-NVSC2021DE260128

PATIENT
  Sex: Male

DRUGS (1)
  1. VORICONAZOLE [Suspect]
     Active Substance: VORICONAZOLE
     Indication: Product used for unknown indication
     Dosage: UNK
     Route: 065

REACTIONS (7)
  - Disseminated mucormycosis [Fatal]
  - Immunosuppression [Fatal]
  - Osteomyelitis [Unknown]
  - General physical health deterioration [Unknown]
  - Arthralgia [Unknown]
  - Pyrexia [Unknown]
  - Infection [Unknown]
